FAERS Safety Report 5358327-5 (Version None)
Quarter: 2007Q2

REPORT INFORMATION
  Report Type: 
  Country: None (occurrence: None)
  Receive Date: 20070530
  Receipt Date: 20061004
  Transmission Date: 20071010
  Serious: Yes (Other)
  Sender: FDA-Public Use
  Company Number: US200602002466

PATIENT
  Age: 45 Year
  Weight: 136.1 kg

DRUGS (6)
  1. ZYPREXA [Suspect]
     Indication: SCHIZOPHRENIA
     Dosage: 15 MG
     Dates: start: 19970101, end: 20051019
  2. CLONAZEPAM [Concomitant]
  3. WELLBUTRIN [Concomitant]
  4. ZOLOFT [Concomitant]
  5. TRAZODIL (TRAZODONE HYDROCHLORIDE) [Concomitant]
  6. HYDROCHLOROTHIAZIDE [Concomitant]

REACTIONS (10)
  - ALBUMINURIA [None]
  - BLOOD CHOLESTEROL INCREASED [None]
  - BLOOD PRESSURE INCREASED [None]
  - BLOOD TRIGLYCERIDES INCREASED [None]
  - DIABETES MELLITUS NON-INSULIN-DEPENDENT [None]
  - HYPERHIDROSIS [None]
  - MIGRAINE [None]
  - STOMACH DISCOMFORT [None]
  - WEIGHT DECREASED [None]
  - WEIGHT INCREASED [None]
